FAERS Safety Report 25606417 (Version 1)
Quarter: 2025Q3

REPORT INFORMATION
  Report Type: Spontaneous
  Country: US (occurrence: US)
  Receive Date: 20250725
  Receipt Date: 20250725
  Transmission Date: 20251021
  Serious: No
  Sender: SANOFI AVENTIS
  Company Number: US-SA-2025SA213794

PATIENT
  Age: 82 Year
  Sex: Female

DRUGS (2)
  1. DUPIXENT [Suspect]
     Active Substance: DUPILUMAB
     Route: 058
  2. MONTELUKAST SODIUM [Suspect]
     Active Substance: MONTELUKAST SODIUM

REACTIONS (1)
  - Anger [Unknown]
